FAERS Safety Report 11898318 (Version 1)
Quarter: 2016Q1

REPORT INFORMATION
  Report Type: Spontaneous
  Country: US (occurrence: None)
  Receive Date: 20160107
  Receipt Date: 20160107
  Transmission Date: 20160526
  Serious: Yes (Disabling)
  Sender: FDA-Public Use
  Company Number: None

PATIENT
  Age: 36 Year
  Sex: Female
  Weight: 72.58 kg

DRUGS (6)
  1. GLIMEPRIDE [Concomitant]
     Active Substance: GLIMEPIRIDE
  2. VITAMIN D [Concomitant]
     Active Substance: CHOLECALCIFEROL
  3. ATORVASTATIN [Suspect]
     Active Substance: ATORVASTATIN
     Indication: BLOOD CHOLESTEROL INCREASED
     Route: 048
  4. ENEBREL [Concomitant]
  5. IRON [Concomitant]
     Active Substance: IRON
  6. VICTOZA [Concomitant]
     Active Substance: LIRAGLUTIDE

REACTIONS (14)
  - Muscular weakness [None]
  - Fatigue [None]
  - Pain in extremity [None]
  - Arthropathy [None]
  - Grip strength decreased [None]
  - Cachexia [None]
  - Feeling abnormal [None]
  - Urinary incontinence [None]
  - Balance disorder [None]
  - Pain [None]
  - Depression [None]
  - Plantar fasciitis [None]
  - Tendon disorder [None]
  - Fall [None]

NARRATIVE: CASE EVENT DATE: 20100101
